FAERS Safety Report 24657802 (Version 1)
Quarter: 2024Q4

REPORT INFORMATION
  Report Type: Spontaneous
  Country: JP (occurrence: JP)
  Receive Date: 20241125
  Receipt Date: 20241125
  Transmission Date: 20250115
  Serious: Yes (Other)
  Sender: BRISTOL-MYERS SQUIBB COMPANY
  Company Number: JP-BRISTOL-MYERS SQUIBB COMPANY-2024-169004

PATIENT
  Age: 67 Year
  Sex: Male

DRUGS (6)
  1. VIDAZA [Suspect]
     Active Substance: AZACITIDINE
     Indication: Acute myeloid leukaemia
     Route: 042
     Dates: start: 2024, end: 2024
  2. VIDAZA [Suspect]
     Active Substance: AZACITIDINE
     Route: 042
     Dates: start: 20240919, end: 20240925
  3. VYXEOS [Suspect]
     Active Substance: CYTARABINE\DAUNORUBICIN
     Indication: Acute myeloid leukaemia
     Route: 042
     Dates: start: 20240830, end: 20240901
  4. VYXEOS [Suspect]
     Active Substance: CYTARABINE\DAUNORUBICIN
     Route: 042
     Dates: start: 20240813, end: 20240817
  5. VENCLEXTA [Concomitant]
     Active Substance: VENETOCLAX
     Indication: Acute myeloid leukaemia
     Dates: start: 20240919, end: 20241009
  6. TEICOPLANIN [Concomitant]
     Active Substance: TEICOPLANIN
     Dates: start: 202408, end: 202408

REACTIONS (5)
  - Hypernatraemia [Not Recovered/Not Resolved]
  - Cytopenia [Unknown]
  - Decreased appetite [Unknown]
  - Acute psychosis [Unknown]
  - Pyrexia [Not Recovered/Not Resolved]

NARRATIVE: CASE EVENT DATE: 20240101
